FAERS Safety Report 7303868-4 (Version None)
Quarter: 2011Q1

REPORT INFORMATION
  Report Type: 
  Country: None (occurrence: None)
  Receive Date: 20110221
  Receipt Date: 20110215
  Transmission Date: 20110831
  Serious: Yes (Other)
  Sender: FDA-Public Use
  Company Number: B0643428A

PATIENT
  Age: 46 Year
  Sex: Male
  Weight: 69 kg

DRUGS (1)
  1. ZYNTABAC [Suspect]
     Indication: TOBACCO ABUSE
     Dosage: 150MG TWICE PER DAY
     Route: 048
     Dates: start: 20100201, end: 20100221

REACTIONS (2)
  - PSORIASIS [None]
  - CONDITION AGGRAVATED [None]
